FAERS Safety Report 9849414 (Version 2)
Quarter: 2014Q1

REPORT INFORMATION
  Report Type: Spontaneous
  Country: JP (occurrence: JP)
  Receive Date: 20140128
  Receipt Date: 20140128
  Transmission Date: 20141002
  Serious: Yes (Death, Hospitalization, Other)
  Sender: FDA-Public Use
  Company Number: JP-PFIZER INC-2014010368

PATIENT
  Age: 67 Year
  Sex: Male

DRUGS (10)
  1. DEXAMETHASONE SODIUM PHOSPHATE [Suspect]
     Indication: PROSTATE CANCER
     Route: 048
  2. DEXAMETHASONE SODIUM PHOSPHATE [Suspect]
     Indication: METASTASES TO BONE
  3. ZOLEDRONIC ACID [Suspect]
     Indication: METASTASES TO BONE
     Dosage: UNK
     Route: 041
  4. ZOLEDRONIC ACID [Suspect]
     Indication: PROSTATE CANCER
  5. CYCLOPHOSPHAMIDE [Suspect]
     Indication: PROSTATE CANCER
  6. CYCLOPHOSPHAMIDE [Suspect]
     Indication: METASTASES TO BONE
  7. DOCETAXEL [Concomitant]
     Indication: METASTASES TO BONE
     Dosage: 70 MG/M2, UNK
     Dates: start: 201105
  8. DOCETAXEL [Concomitant]
     Indication: PROSTATE CANCER
  9. ESTRAMUSTINE [Concomitant]
     Indication: PROSTATE CANCER
  10. ESTRAMUSTINE [Concomitant]
     Indication: METASTASES TO BONE

REACTIONS (3)
  - Renal failure [Fatal]
  - Osteonecrosis of jaw [Unknown]
  - Pharyngeal abscess [Unknown]
